FAERS Safety Report 5456277-7 (Version None)
Quarter: 2007Q3

REPORT INFORMATION
  Report Type: 
  Country: None (occurrence: None)
  Receive Date: 20070918
  Receipt Date: 20070228
  Transmission Date: 20080115
  Serious: Yes (Other)
  Sender: FDA-Public Use
  Company Number: US-ASTRAZENECA-2006UW22959

PATIENT
  Sex: Female
  Weight: 72.7 kg

DRUGS (3)
  1. SEROQUEL [Suspect]
     Indication: NERVOUSNESS
     Route: 048
     Dates: start: 20030913, end: 20060101
  2. SEROQUEL [Suspect]
     Indication: DEPRESSION
     Route: 048
     Dates: start: 20030913, end: 20060101
  3. TRAZODONE HCL [Concomitant]
     Dates: start: 19960301

REACTIONS (1)
  - PANCREATITIS [None]
